FAERS Safety Report 6291891-0 (Version None)
Quarter: 2009Q3

REPORT INFORMATION
  Report Type: 
  Country: None (occurrence: None)
  Receive Date: 20090729
  Receipt Date: 20090713
  Transmission Date: 20100115
  Serious: Yes (Hospitalization, Other)
  Sender: FDA-Public Use
  Company Number: DSA_34005_2009

PATIENT
  Age: 45 Year
  Sex: Female

DRUGS (2)
  1. BUPROPION HCL [Suspect]
     Dosage: 16000 MG 1X, NOT THE PRESCRIBED AMOUNT. ORAL
     Route: 048
  2. HYPNOTICS AND SEDATIVES [Suspect]
     Dosage: AMOUNT UNKNOWN ORAL
     Route: 048

REACTIONS (8)
  - AGITATION [None]
  - BLOOD PRESSURE SYSTOLIC INCREASED [None]
  - CONVULSION [None]
  - HALLUCINATION, VISUAL [None]
  - HEART RATE INCREASED [None]
  - INCORRECT DOSE ADMINISTERED [None]
  - PNEUMONIA ASPIRATION [None]
  - RESPIRATORY RATE INCREASED [None]
